FAERS Safety Report 19865772 (Version 2)
Quarter: 2021Q3

REPORT INFORMATION
  Report Type: Spontaneous
  Country: US (occurrence: US)
  Receive Date: 20210922
  Receipt Date: 20210930
  Transmission Date: 20211014
  Serious: Yes (Hospitalization, Other)
  Sender: FDA-Public Use
  Company Number: US-LUPIN PHARMACEUTICALS INC.-2021-17914

PATIENT
  Age: 14 Year
  Sex: Male

DRUGS (5)
  1. METHYLPHENIDATE. [Suspect]
     Active Substance: METHYLPHENIDATE
     Indication: ATTENTION DEFICIT HYPERACTIVITY DISORDER
     Dosage: 36 MILLIGRAM, QD
     Route: 048
     Dates: start: 201704
  2. ACETAMINOPHEN. [Suspect]
     Active Substance: ACETAMINOPHEN
     Indication: PRODUCT USED FOR UNKNOWN INDICATION
     Dosage: ACETAMINOPHEN 500 MG
     Route: 048
  3. METHYLPHENIDATE. [Suspect]
     Active Substance: METHYLPHENIDATE
     Dosage: 14 CAPSULES OF 54 MG (ONCE)
     Route: 048
     Dates: start: 202003
  4. METHYLPHENIDATE. [Suspect]
     Active Substance: METHYLPHENIDATE
     Dosage: 54 MILLIGRAM, QD
     Route: 048
     Dates: start: 202003
  5. MAGNESIUM OXIDE. [Suspect]
     Active Substance: MAGNESIUM OXIDE
     Indication: PRODUCT USED FOR UNKNOWN INDICATION
     Dosage: UNK 10 TABLETS OF MAGNESIUM OXIDE 400 MG
     Route: 048

REACTIONS (8)
  - Intentional overdose [Unknown]
  - Blood glucose increased [Recovered/Resolved]
  - Suicide attempt [Unknown]
  - Condition aggravated [Recovered/Resolved]
  - Dyskinesia [Recovered/Resolved]
  - Choreoathetosis [Unknown]
  - Nausea [Recovered/Resolved]
  - Anxiety [Recovered/Resolved]
